FAERS Safety Report 8793122 (Version 2)
Quarter: 2014Q3

REPORT INFORMATION
  Report Type: Spontaneous
  Country: US (occurrence: US)
  Receive Date: 20120917
  Receipt Date: 20140829
  Transmission Date: 20150326
  Serious: Yes (Other)
  Sender: FDA-Public Use
  Company Number: US-ASTRAZENECA-2012SE70754

PATIENT
  Age: 64 Year
  Sex: Female
  Weight: 114.8 kg

DRUGS (13)
  1. MODERATE ESTROGEN [Concomitant]
     Dosage: NOT REPORTED NR
  2. RESTASIS [Concomitant]
     Active Substance: CYCLOSPORINE
     Dosage: 1 DROP AFFECTED EYE Q12H
     Route: 047
  3. MECLIZINE [Concomitant]
     Active Substance: MECLIZINE\MECLIZINE HYDROCHLORIDE
     Dosage: 25 MG EVERY SIX HOURS AS NEEDED
     Route: 048
  4. SINGULAIR [Concomitant]
     Active Substance: MONTELUKAST SODIUM
     Route: 048
  5. NEXIUM [Suspect]
     Active Substance: ESOMEPRAZOLE MAGNESIUM
     Route: 048
  6. PROPRANOLOL [Concomitant]
     Active Substance: PROPRANOLOL\PROPRANOLOL HYDROCHLORIDE
     Route: 048
  7. ASPIRIN. [Concomitant]
     Active Substance: ASPIRIN
     Route: 048
  8. IBUPROFEN. [Concomitant]
     Active Substance: IBUPROFEN
     Route: 048
  9. MAG OXIDE [Concomitant]
     Route: 048
  10. XANAX [Concomitant]
     Active Substance: ALPRAZOLAM
     Dosage: 0.5 MG EVERY 4-6 HOURS AS NEEDED
     Route: 048
  11. LIPITOR [Concomitant]
     Active Substance: ATORVASTATIN CALCIUM
     Route: 048
  12. METAMUCIL [Concomitant]
     Active Substance: PLANTAGO SEED
     Dosage: NOT REPORTED NR
  13. PENICILLIN V POATSSIUM [Concomitant]
     Route: 048

REACTIONS (20)
  - Polycystic ovaries [Unknown]
  - Depression [Unknown]
  - Off label use [Unknown]
  - Adjustment disorder [Unknown]
  - Obesity [Unknown]
  - Anxiety [Unknown]
  - Type 2 diabetes mellitus [Unknown]
  - Dysuria [Unknown]
  - Anaemia [Unknown]
  - Post-traumatic stress disorder [Unknown]
  - Stress [Unknown]
  - Anxiety disorder [Unknown]
  - Sleep apnoea syndrome [Unknown]
  - Muscle atrophy [Unknown]
  - Ovarian mass [Unknown]
  - Fatigue [Unknown]
  - Pain [Unknown]
  - Pain in extremity [Unknown]
  - Gastrooesophageal reflux disease [Unknown]
  - Nervousness [Unknown]
